FAERS Safety Report 14991817 (Version 1)
Quarter: 2018Q2

REPORT INFORMATION
  Report Type: Spontaneous
  Country: DE (occurrence: DE)
  Receive Date: 20180608
  Receipt Date: 20180608
  Transmission Date: 20180711
  Serious: Yes (Other)
  Sender: FDA-Public Use
  Company Number: PHHY2018DE017059

PATIENT
  Age: 79 Year
  Sex: Male
  Weight: 77 kg

DRUGS (2)
  1. VARGATEF [Suspect]
     Active Substance: NINTEDANIB
     Indication: LUNG ADENOCARCINOMA
     Dosage: 200 MG, QD
     Route: 048
     Dates: start: 20160405
  2. DOCETAXEL. [Suspect]
     Active Substance: DOCETAXEL
     Indication: LUNG ADENOCARCINOMA
     Dosage: 75 MG/M2, UNK (75MG/M2 PER BODY SURFACE AREA)
     Route: 042

REACTIONS (4)
  - Alopecia [Unknown]
  - Febrile neutropenia [Recovered/Resolved]
  - Chills [Recovered/Resolved]
  - Muscular weakness [Recovered/Resolved]

NARRATIVE: CASE EVENT DATE: 20160504
